FAERS Safety Report 8782428 (Version 2)
Quarter: 2012Q4

REPORT INFORMATION
  Report Type: 
  Country: US (occurrence: US)
  Receive Date: 20120913
  Receipt Date: 20121205
  Transmission Date: 20130627
  Serious: No
  Sender: FDA-Public Use
  Company Number: US-ASTRAZENECA-2012SE64710

PATIENT
  Age: 55 Year
  Sex: Male

DRUGS (1)
  1. SYMBICORT PMDI [Suspect]
     Dosage: 3 PUFFS,UNKNOWN
     Route: 055

REACTIONS (6)
  - Dyspnoea [Unknown]
  - Chest pain [Unknown]
  - Vomiting [Unknown]
  - Malaise [Unknown]
  - Headache [Unknown]
  - Intentional drug misuse [Unknown]
